FAERS Safety Report 8346283-7 (Version None)
Quarter: 2012Q2

REPORT INFORMATION
  Report Type: 
  Country: None (occurrence: None)
  Receive Date: 20120509
  Receipt Date: 20120322
  Transmission Date: 20120825
  Serious: No
  Sender: FDA-Public Use
  Company Number: US-COVIDIEN/TYCO HEALTHCARE/MALLINCKRODT-T201201232

PATIENT
  Sex: Female
  Weight: 68.027 kg

DRUGS (3)
  1. MULTIVITAMIN                       /00097801/ [Concomitant]
     Indication: SUPPLEMENTATION THERAPY
     Dosage: 1 TAB, QD
     Route: 048
  2. PENNSAID [Suspect]
     Indication: ARTHRALGIA
     Dosage: 20 GTT, QID
     Route: 061
     Dates: start: 20120126, end: 20120127
  3. IBUPROFEN [Concomitant]
     Indication: PAIN
     Dosage: 800 MG, QHS
     Route: 048

REACTIONS (1)
  - HYPOAESTHESIA [None]
